FAERS Safety Report 23501706 (Version 2)
Quarter: 2024Q4

REPORT INFORMATION
  Report Type: Spontaneous
  Country: SA (occurrence: SA)
  Receive Date: 20240208
  Receipt Date: 20241121
  Transmission Date: 20250114
  Serious: Yes (Disabling, Other)
  Sender: MYLAN
  Company Number: SA-MYLANLABS-2024M1012767

PATIENT
  Sex: Male

DRUGS (2)
  1. DETRUSITOL [Suspect]
     Active Substance: TOLTERODINE TARTRATE
     Indication: Bladder disorder
     Dosage: UNK
     Route: 065
  2. DETRUSITOL [Suspect]
     Active Substance: TOLTERODINE TARTRATE
     Indication: Pollakiuria

REACTIONS (4)
  - Disability [Unknown]
  - Hypokinesia [Unknown]
  - Micturition urgency [Unknown]
  - Drug hypersensitivity [Unknown]

NARRATIVE: CASE EVENT DATE: 20160101
